FAERS Safety Report 6403530-6 (Version None)
Quarter: 2009Q4

REPORT INFORMATION
  Report Type: 
  Country: None (occurrence: None)
  Receive Date: 20091016
  Receipt Date: 20090706
  Transmission Date: 20100525
  Serious: Yes (Death)
  Sender: FDA-Public Use
  Company Number: AU-PFIZER INC-2009235998

PATIENT
  Age: 30 Year

DRUGS (2)
  1. CHAMPIX [Suspect]
     Dosage: UNK
     Dates: start: 20080701, end: 20081001
  2. ANTIDEPRESSANTS [Concomitant]

REACTIONS (3)
  - AGGRESSION [None]
  - COMPLETED SUICIDE [None]
  - MOOD SWINGS [None]
